FAERS Safety Report 5445137-3 (Version None)
Quarter: 2007Q3

REPORT INFORMATION
  Report Type: 
  Country: None (occurrence: None)
  Receive Date: 20070906
  Receipt Date: 20070827
  Transmission Date: 20080115
  Serious: Yes (Death, Other)
  Sender: FDA-Public Use
  Company Number: ES-PFIZER INC-2007023675

PATIENT
  Sex: Male
  Weight: 85 kg

DRUGS (8)
  1. LINEZOLID [Suspect]
     Indication: INFECTION
     Dosage: DAILY DOSE:600MG
     Route: 042
     Dates: start: 20070128, end: 20070309
  2. RANITIDINE [Concomitant]
     Route: 042
     Dates: start: 20070128, end: 20070403
  3. METOCLOPRAMIDE [Concomitant]
     Route: 042
     Dates: start: 20070128, end: 20070322
  4. FUROSEMIDE [Concomitant]
     Route: 042
     Dates: start: 20070124, end: 20070322
  5. IMIPENEM [Concomitant]
     Route: 042
     Dates: start: 20070128, end: 20070214
  6. INSULIN [Concomitant]
     Route: 042
     Dates: start: 20070128, end: 20070403
  7. MIDAZOLAM HCL [Concomitant]
     Route: 042
     Dates: start: 20070128, end: 20070403
  8. NORADRENALINE [Concomitant]
     Route: 042
     Dates: start: 20070128, end: 20070403

REACTIONS (3)
  - LACTIC ACIDOSIS [None]
  - MULTI-ORGAN FAILURE [None]
  - UPPER RESPIRATORY TRACT INFECTION [None]
